FAERS Safety Report 16688510 (Version 1)
Quarter: 2019Q3

REPORT INFORMATION
  Report Type: Spontaneous
  Country: US (occurrence: US)
  Receive Date: 20190809
  Receipt Date: 20190809
  Transmission Date: 20191004
  Serious: No
  Sender: FDA-Public Use
  Company Number: US-PURDUE-USA-2019-0146448

PATIENT
  Sex: Male

DRUGS (1)
  1. BUPRENORPHINE TRANSDERMAL PATCH (SIMILAR TO NDA 21-306) [Suspect]
     Active Substance: BUPRENORPHINE
     Indication: BACK PAIN
     Dosage: 20 MCG/HR, WEEKLY
     Route: 062
     Dates: start: 201901

REACTIONS (8)
  - Drug withdrawal syndrome [Unknown]
  - Drug ineffective [Unknown]
  - Anxiety [Unknown]
  - Wrong technique in product usage process [Unknown]
  - Insomnia [Unknown]
  - Application site irritation [Unknown]
  - Product adhesion issue [Unknown]
  - Back pain [Unknown]
